FAERS Safety Report 10742556 (Version 3)
Quarter: 2015Q2

REPORT INFORMATION
  Report Type: Spontaneous
  Country: AR (occurrence: AR)
  Receive Date: 20150127
  Receipt Date: 20150616
  Transmission Date: 20150821
  Serious: Yes (Other)
  Sender: FDA-Public Use
  Company Number: AR-PFIZER INC-2014345038

PATIENT
  Age: 63 Year
  Sex: Female

DRUGS (2)
  1. LEVOTIROXIN [Concomitant]
     Dosage: UNK
     Dates: start: 20120919
  2. TORISEL [Suspect]
     Active Substance: TEMSIROLIMUS
     Indication: METASTATIC RENAL CELL CARCINOMA
     Dosage: 25 MG, WEEKLY
     Dates: start: 20120919, end: 201504

REACTIONS (4)
  - Inflammation [Recovering/Resolving]
  - Dyspnoea [Recovering/Resolving]
  - Contrast media allergy [Recovering/Resolving]
  - Pharyngeal oedema [Recovering/Resolving]

NARRATIVE: CASE EVENT DATE: 201412
